FAERS Safety Report 16203183 (Version 4)
Quarter: 2019Q2

REPORT INFORMATION
  Report Type: Spontaneous
  Country: ES (occurrence: ES)
  Receive Date: 20190416
  Receipt Date: 20190619
  Transmission Date: 20190711
  Serious: Yes (Death, Hospitalization, Other)
  Sender: FDA-Public Use
  Company Number: ES-MYLANLABS-2019M1035485

PATIENT
  Age: 35 Year
  Sex: Female

DRUGS (9)
  1. BENDAMUSTINE MYLAN [Suspect]
     Active Substance: BENDAMUSTINE HYDROCHLORIDE
     Indication: HODGKIN^S DISEASE
     Dosage: 90 MG/M2
     Route: 042
     Dates: start: 2012
  2. CELECOXIB. [Suspect]
     Active Substance: CELECOXIB
     Dosage: 200 MILLIGRAM, BID
     Route: 065
     Dates: start: 2015, end: 201603
  3. LEVACT [Suspect]
     Active Substance: BENDAMUSTINE HYDROCHLORIDE
     Dosage: UNK, 2.5 MG/ML POWDER FOR CONCENTRATE FOR SOLUTION FOR INFUSION, 5 VIALS OF 100 MG, CYCLIC
     Route: 042
     Dates: start: 20120723
  4. CELECOXIB. [Suspect]
     Active Substance: CELECOXIB
     Dosage: 200 MILLIGRAM, BID
     Dates: start: 2016, end: 2017
  5. LEVACT [Suspect]
     Active Substance: BENDAMUSTINE HYDROCHLORIDE
     Indication: HODGKIN^S DISEASE
     Dosage: 90 MILLIGRAM/SQ. METER
     Route: 042
  6. LEVACT [Suspect]
     Active Substance: BENDAMUSTINE HYDROCHLORIDE
     Dosage: UNK, 2.5 MG/ML POWDER FOR CONCENTRATE FOR SOLUTION FOR INFUSION, 5 VIALS OF 100 MG
     Route: 042
     Dates: start: 20120820
  7. LENALIDOMIDE [Concomitant]
     Active Substance: LENALIDOMIDE
     Indication: HODGKIN^S DISEASE
     Dosage: 20 MG, UNKNOWN FREQ. (FOR 3 OF EVERY 4 WEEKS).
     Route: 065
     Dates: start: 201408, end: 201501
  8. CELECOXIB. [Suspect]
     Active Substance: CELECOXIB
     Indication: HODGKIN^S DISEASE
     Dosage: 200 MILLIGRAM, BID
     Dates: start: 201408, end: 201501
  9. CELECOXIB. [Suspect]
     Active Substance: CELECOXIB
     Dosage: 200 MILLIGRAM, BID
     Route: 065

REACTIONS (7)
  - Sepsis [Fatal]
  - Disease progression [Fatal]
  - Intentional product misuse [Unknown]
  - Product use in unapproved indication [Fatal]
  - Anaemia [Fatal]
  - Gastrointestinal haemorrhage [Fatal]
  - Drug effective for unapproved indication [Unknown]

NARRATIVE: CASE EVENT DATE: 201603
